FAERS Safety Report 8614959-X (Version None)
Quarter: 2012Q3

REPORT INFORMATION
  Report Type: 
  Country: None (occurrence: None)
  Receive Date: 20120809
  Receipt Date: 20120725
  Transmission Date: 20120928
  Serious: Yes (Death, Hospitalization, Other)
  Sender: FDA-Public Use
  Company Number: 2012MA009105

PATIENT
  Age: 28 Year
  Sex: Male

DRUGS (2)
  1. KADIAN [Suspect]
  2. METHADONE HCL [Concomitant]

REACTIONS (10)
  - APNOEA [None]
  - MULTI-ORGAN FAILURE [None]
  - HYPOXIC-ISCHAEMIC ENCEPHALOPATHY [None]
  - INTENTIONAL DRUG MISUSE [None]
  - BLOOD GLUCOSE INCREASED [None]
  - UNRESPONSIVE TO STIMULI [None]
  - CARDIAC ARREST [None]
  - BLOOD POTASSIUM INCREASED [None]
  - HEPATIC CONGESTION [None]
  - PERICARDIAL EFFUSION [None]
